FAERS Safety Report 7327424-7 (Version None)
Quarter: 2011Q1

REPORT INFORMATION
  Report Type: 
  Country: None (occurrence: None)
  Receive Date: 20110303
  Receipt Date: 20110228
  Transmission Date: 20110831
  Serious: Yes (Other)
  Sender: FDA-Public Use
  Company Number: US-ASTRAZENECA-2010SE49116

PATIENT
  Age: 23982 Day
  Sex: Female

DRUGS (13)
  1. CEFZIL [Concomitant]
     Dates: start: 20011214
  2. NORVASC [Concomitant]
     Dosage: 5 MG, 10 MG DISPENSED
     Dates: start: 20011001
  3. SYNTHROID [Concomitant]
     Dates: start: 20011001
  4. CLARINEX [Concomitant]
     Dates: start: 20020121
  5. HYZAAR [Concomitant]
     Dates: start: 20090801
  6. NEURONTIN [Concomitant]
     Dates: start: 20020314
  7. SEROQUEL [Suspect]
     Route: 048
     Dates: start: 20020201
  8. TRAZODONE [Concomitant]
     Dates: start: 20011205
  9. SEROQUEL [Suspect]
     Route: 048
     Dates: start: 20020225
  10. ZYRTEC [Concomitant]
     Dates: start: 20011121
  11. NASONEX [Concomitant]
     Dates: start: 20050826
  12. PAXIL [Concomitant]
     Dates: start: 20011126
  13. ACYCLOVIR [Concomitant]
     Dates: start: 20050826

REACTIONS (4)
  - DIABETIC NEUROPATHY [None]
  - TYPE 2 DIABETES MELLITUS [None]
  - DIABETIC NEPHROPATHY [None]
  - RENAL FAILURE CHRONIC [None]
